FAERS Safety Report 17351448 (Version 1)
Quarter: 2020Q1

REPORT INFORMATION
  Report Type: Spontaneous
  Country: CA (occurrence: CA)
  Receive Date: 20200130
  Receipt Date: 20200130
  Transmission Date: 20200409
  Serious: Yes (Other)
  Sender: FDA-Public Use
  Company Number: CA-TEVA-2020-CA-1176905

PATIENT
  Age: 14 Year
  Sex: Female

DRUGS (6)
  1. CISPLATIN. [Suspect]
     Active Substance: CISPLATIN
     Indication: MEDULLOBLASTOMA
     Route: 065
  2. VINBLASTINE [Suspect]
     Active Substance: VINBLASTINE
     Indication: MEDULLOBLASTOMA
     Route: 065
  3. FILGRASTIM [Suspect]
     Active Substance: FILGRASTIM
     Indication: MEDULLOBLASTOMA
     Route: 065
  4. LOMUSTINE. [Suspect]
     Active Substance: LOMUSTINE
     Indication: MEDULLOBLASTOMA
     Route: 065
  5. MESNA. [Suspect]
     Active Substance: MESNA
     Indication: MEDULLOBLASTOMA
     Route: 065
  6. CYCLOPHOSPHAMIDE. [Suspect]
     Active Substance: CYCLOPHOSPHAMIDE
     Indication: MEDULLOBLASTOMA
     Route: 065

REACTIONS (6)
  - Hepatotoxicity [Recovered/Resolved]
  - Ototoxicity [Recovered/Resolved]
  - Neuropathy peripheral [Recovered/Resolved]
  - Peripheral sensory neuropathy [Recovered/Resolved]
  - Peripheral motor neuropathy [Recovered/Resolved]
  - Intentional product use issue [Recovered/Resolved]
